FAERS Safety Report 7368765-7 (Version None)
Quarter: 2011Q1

REPORT INFORMATION
  Report Type: 
  Country: None (occurrence: None)
  Receive Date: 20110323
  Receipt Date: 20110316
  Transmission Date: 20110831
  Serious: Yes (Hospitalization)
  Sender: FDA-Public Use
  Company Number: US-B.I. PHARMACEUTICALS,INC./RIDGEFIELD-2011-BP-08755BP

PATIENT
  Sex: Female

DRUGS (6)
  1. METFORMIN [Concomitant]
     Indication: DIABETES MELLITUS
  2. REGULAR INSULIN [Concomitant]
     Indication: DIABETES MELLITUS
  3. PRADAXA [Suspect]
     Indication: ATRIAL FIBRILLATION
     Dosage: 300 MG
     Dates: start: 20110202, end: 20110314
  4. LISINOPRIL [Concomitant]
     Indication: HYPERTENSION
  5. SIMVASTATIN [Concomitant]
     Indication: BLOOD CHOLESTEROL INCREASED
  6. GLYPIZIDE [Concomitant]
     Indication: DIABETES MELLITUS

REACTIONS (1)
  - LOWER GASTROINTESTINAL HAEMORRHAGE [None]
